FAERS Safety Report 15703266 (Version 1)
Quarter: 2018Q4

REPORT INFORMATION
  Report Type: Spontaneous
  Country: US (occurrence: US)
  Receive Date: 20181209
  Receipt Date: 20181209
  Transmission Date: 20190205
  Serious: Yes (Disabling, Other)
  Sender: FDA-Public Use
  Company Number: None

PATIENT
  Age: 39 Year
  Sex: Female
  Weight: 49.5 kg

DRUGS (1)
  1. AIMOVIG [Suspect]
     Active Substance: ERENUMAB-AOOE
     Indication: MIGRAINE
     Dosage: ?          QUANTITY:1 INJECTION(S);OTHER FREQUENCY:ONCE PER MONTH;?
     Route: 030
     Dates: start: 20180708, end: 20181031

REACTIONS (16)
  - Tachycardia [None]
  - Depression [None]
  - Monoparesis [None]
  - Fatigue [None]
  - Skin burning sensation [None]
  - Weight decreased [None]
  - Chest discomfort [None]
  - Ear pain [None]
  - Constipation [None]
  - Loss of consciousness [None]
  - Blindness [None]
  - Autonomic nervous system imbalance [None]
  - Injection site irritation [None]
  - Dyspnoea [None]
  - Pain in extremity [None]
  - Pain in jaw [None]

NARRATIVE: CASE EVENT DATE: 20180802
